FAERS Safety Report 5240097-2 (Version None)
Quarter: 2007Q1

REPORT INFORMATION
  Report Type: 
  Country: None (occurrence: None)
  Receive Date: 20070216
  Receipt Date: 20070205
  Transmission Date: 20070707
  Serious: Yes (Disabling)
  Sender: FDA-Public Use
  Company Number: PT-PFIZER INC-2007010632

PATIENT
  Age: 60 Year
  Sex: Male

DRUGS (4)
  1. LYRICA [Suspect]
     Indication: MUSCLE CONTRACTURE
     Route: 048
  2. NEURONTIN [Suspect]
     Indication: MUSCLE CONTRACTURE
     Route: 048
  3. PRAVASTATIN [Suspect]
     Route: 048
  4. TAMSULOSIN HCL [Concomitant]
     Route: 048

REACTIONS (3)
  - CONDITION AGGRAVATED [None]
  - GAIT DISTURBANCE [None]
  - PROSTRATION [None]
